FAERS Safety Report 13783775 (Version 1)
Quarter: 2017Q3

REPORT INFORMATION
  Report Type: Report from Study
  Country: BR (occurrence: BR)
  Receive Date: 20170724
  Receipt Date: 20170724
  Transmission Date: 20171127
  Serious: Yes (Death, Other)
  Sender: FDA-Public Use
  Company Number: PHHY2017BR108370

PATIENT
  Sex: Female

DRUGS (1)
  1. ACLASTA [Suspect]
     Active Substance: ZOLEDRONIC ACID
     Indication: OSTEOPOROSIS
     Dosage: UNK UNK, Q12MO
     Route: 065

REACTIONS (5)
  - Death [Fatal]
  - Bone cancer metastatic [Unknown]
  - Malaise [Unknown]
  - Gait disturbance [Recovering/Resolving]
  - Drug ineffective [Unknown]
